FAERS Safety Report 23938615 (Version 1)
Quarter: 2024Q2

REPORT INFORMATION
  Report Type: Spontaneous
  Country: US (occurrence: None)
  Receive Date: 20240604
  Receipt Date: 20240604
  Transmission Date: 20240715
  Serious: Yes (Other)
  Sender: FDA-Public Use
  Company Number: None

PATIENT
  Age: 51 Year
  Sex: Female
  Weight: 66.6 kg

DRUGS (1)
  1. ROSUVASTATIN [Suspect]
     Active Substance: ROSUVASTATIN
     Indication: Type IIa hyperlipidaemia
     Dosage: OTHER QUANTITY : 1 TABLET(S);?OTHER FREQUENCY : 1X A WEEK;?
     Route: 048

REACTIONS (2)
  - Palpitations [None]
  - Insomnia [None]

NARRATIVE: CASE EVENT DATE: 20240530
